FAERS Safety Report 5430422-1 (Version None)
Quarter: 2007Q3

REPORT INFORMATION
  Report Type: 
  Country: None (occurrence: None)
  Receive Date: 20070830
  Receipt Date: 20070821
  Transmission Date: 20080115
  Serious: Yes (Other)
  Sender: FDA-Public Use
  Company Number: FR-JNJFOC-20070703820

PATIENT
  Age: 33 Year
  Sex: Female
  Weight: 54 kg

DRUGS (2)
  1. REMICADE [Suspect]
     Route: 042
  2. REMICADE [Suspect]
     Indication: CROHN'S DISEASE
     Dosage: DURATION OF THERAPY MORE THAN 2 YEARS
     Route: 042

REACTIONS (7)
  - DERMATITIS PSORIASIFORM [None]
  - FOLLICULITIS [None]
  - HYPERKERATOSIS [None]
  - NEOPLASM SKIN [None]
  - RASH [None]
  - SEBORRHOEIC KERATOSIS [None]
  - SKIN INFECTION [None]
